FAERS Safety Report 16838136 (Version 1)
Quarter: 2019Q3

REPORT INFORMATION
  Report Type: Spontaneous
  Country: GB (occurrence: GB)
  Receive Date: 20190923
  Receipt Date: 20190923
  Transmission Date: 20191005
  Serious: Yes (Death)
  Sender: FDA-Public Use
  Company Number: GB-TEVA-2019-GB-1109854

PATIENT
  Age: 62 Year
  Sex: Female
  Weight: 67.4 kg

DRUGS (9)
  1. DEXAMETHASONE. [Concomitant]
     Active Substance: DEXAMETHASONE
     Indication: CHEMOTHERAPY
     Dosage: 2 CYCLES
     Dates: start: 20190710
  2. FLUOROURACIL. [Concomitant]
     Active Substance: FLUOROURACIL
     Indication: CHEMOTHERAPY
     Dosage: 2 CYCLES
     Dates: start: 20190710
  3. CYCLOPHOSPHAMIDE. [Concomitant]
     Active Substance: CYCLOPHOSPHAMIDE
     Indication: CHEMOTHERAPY
     Dosage: 2 CYCLES
     Dates: start: 20190710
  4. LIPEGFILGRASTIM [Suspect]
     Active Substance: LIPEGFILGRASTIM
     Dosage: USED IN CYCLE ONE OF FEC100-T CHEMOTHERAPY
  5. ORAMORPH [Concomitant]
     Active Substance: MORPHINE SULFATE
  6. ONDANSETRON [Concomitant]
     Active Substance: ONDANSETRON
  7. EPIRUBICIN [Concomitant]
     Active Substance: EPIRUBICIN
     Indication: CHEMOTHERAPY
     Dosage: 2 CYCLES
     Dates: start: 20190710
  8. METOCLOPRAMIDE. [Concomitant]
     Active Substance: METOCLOPRAMIDE
  9. MST CONTINUS [Concomitant]
     Active Substance: MORPHINE SULFATE

REACTIONS (4)
  - Pain [Fatal]
  - Embolic stroke [Fatal]
  - Loss of consciousness [Fatal]
  - Dizziness [Fatal]

NARRATIVE: CASE EVENT DATE: 20190803
